FAERS Safety Report 21897775 (Version 1)
Quarter: 2023Q1

REPORT INFORMATION
  Report Type: Spontaneous
  Country: US (occurrence: US)
  Receive Date: 20230123
  Receipt Date: 20230123
  Transmission Date: 20230418
  Serious: No
  Sender: FDA-Public Use
  Company Number: US-SA-SAC20230120000184

PATIENT
  Sex: Male

DRUGS (1)
  1. MULTAQ [Suspect]
     Active Substance: DRONEDARONE
     Indication: Tachycardia
     Dosage: BID
     Route: 065

REACTIONS (2)
  - Drug effective for unapproved indication [Unknown]
  - Tachycardia [Recovered/Resolved]
